FAERS Safety Report 7463346-9 (Version None)
Quarter: 2011Q2

REPORT INFORMATION
  Report Type: 
  Country: None (occurrence: None)
  Receive Date: 20110506
  Receipt Date: 20110426
  Transmission Date: 20111010
  Serious: Yes (Hospitalization, Other)
  Sender: FDA-Public Use
  Company Number: JP-PFIZER INC-2011095668

PATIENT
  Age: 82 Year
  Sex: Female

DRUGS (1)
  1. AMIODARONE HCL [Suspect]
     Indication: VENTRICULAR TACHYCARDIA
     Dosage: 100 MG, UNK
     Route: 065
     Dates: start: 20100303

REACTIONS (5)
  - DYSPHAGIA [None]
  - ASCITES [None]
  - PLEURAL EFFUSION [None]
  - HYPOTHYROIDISM [None]
  - ABDOMINAL DISTENSION [None]
